FAERS Safety Report 9515600 (Version 2)
Quarter: 2014Q1

REPORT INFORMATION
  Report Type: Spontaneous
  Country: US (occurrence: None)
  Receive Date: 20130305
  Receipt Date: 20140306
  Transmission Date: 20141002
  Serious: Yes (Other)
  Sender: FDA-Public Use
  Company Number: 163-21880-12102897

PATIENT
  Age: 49 Year
  Sex: Male
  Weight: 104.33 kg

DRUGS (7)
  1. REVLIMID [Suspect]
     Indication: PLASMA CELL MYELOMA
     Dosage: 25 MG, 21 IN 28 D, PO
     Route: 048
     Dates: start: 20120917, end: 20121015
  2. VELCADE [Suspect]
     Indication: PLASMA CELL MYELOMA
     Dosage: 2.8 MG, D1, 4, 8, 11 Q 21 DAYS, SC
     Route: 058
     Dates: start: 20120601
  3. BACTRIM DS [Suspect]
     Indication: PROPHYLAXIS
     Dosage: 800MG/160MG, MWF, PO
     Route: 048
     Dates: start: 20120522, end: 20120927
  4. ASPIRIN (ACETYLSALICYLIC ACID) (CHEWABLE TABLET) [Concomitant]
  5. DEXAMETHASONE (DEXAMETHASONE) (4 MILLIGRAM, TABLETS) [Concomitant]
  6. VALACYCLOVIR (VALACICLOVIR HYDROCHLORIDE) (UNKNOWN) [Concomitant]
  7. SULFAMETHOXAZOLE (SULFAMETHOXAZOLE) (UNKNOWN) [Concomitant]

REACTIONS (1)
  - Neutrophil count decreased [None]
